FAERS Safety Report 9207488 (Version 1)
Quarter: 2013Q2

REPORT INFORMATION
  Report Type: Other
  Country: GB (occurrence: GB)
  Receive Date: 20130403
  Receipt Date: 20130403
  Transmission Date: 20140414
  Serious: Yes (Other)
  Sender: FDA-Public Use
  Company Number: GB-WATSON-2013-05161

PATIENT
  Age: 82 Year
  Sex: Female

DRUGS (1)
  1. CIPROFLOXACIN HYDROCHLORIDE (UNKNOWN) [Suspect]
     Indication: EAR INFECTION
     Dosage: 500 MG, BID
     Route: 048
     Dates: start: 20130308, end: 20130310

REACTIONS (6)
  - Muscle spasms [Recovering/Resolving]
  - Pain in extremity [Recovering/Resolving]
  - Abasia [Recovering/Resolving]
  - Gait disturbance [Recovering/Resolving]
  - Limb discomfort [Recovering/Resolving]
  - Pain [Recovering/Resolving]
